FAERS Safety Report 23180959 (Version 1)
Quarter: 2023Q4

REPORT INFORMATION
  Report Type: Spontaneous
  Country: US (occurrence: None)
  Receive Date: 20231113
  Receipt Date: 20231113
  Transmission Date: 20240109
  Serious: Yes (Hospitalization)
  Sender: FDA-Public Use
  Company Number: None

PATIENT
  Age: 74 Year
  Sex: Male
  Weight: 90 kg

DRUGS (1)
  1. BREYANZI [Suspect]
     Active Substance: LISOCABTAGENE MARALEUCEL
     Indication: Diffuse large B-cell lymphoma
     Dates: start: 20230906, end: 20230906

REACTIONS (9)
  - Cytokine release syndrome [None]
  - Immune effector cell-associated neurotoxicity syndrome [None]
  - Haemophagocytic lymphohistiocytosis [None]
  - Hypertransaminasaemia [None]
  - Bradycardia [None]
  - Hyperglycaemia [None]
  - Asthenia [None]
  - Neurotoxicity [None]
  - Bacterial infection [None]

NARRATIVE: CASE EVENT DATE: 20230906
